FAERS Safety Report 9282624 (Version 2)
Quarter: 2013Q2

REPORT INFORMATION
  Report Type: Spontaneous
  Country: JP (occurrence: JP)
  Receive Date: 20130510
  Receipt Date: 20130522
  Transmission Date: 20140414
  Serious: Yes (Hospitalization)
  Sender: FDA-Public Use
  Company Number: PHHY2013JP043696

PATIENT
  Sex: Male

DRUGS (4)
  1. RIVASTIGMIN [Suspect]
     Indication: DEMENTIA ALZHEIMER^S TYPE
     Dosage: 4.5 MG, DAILY
     Route: 062
     Dates: start: 201212
  2. RIVASTIGMIN [Suspect]
     Dosage: 9 MG, DAILY
     Route: 062
  3. RIVASTIGMIN [Suspect]
     Dosage: 13.3 MG, DAILY
     Route: 062
  4. RIVASTIGMIN [Suspect]
     Dosage: 18 MG, DAILY
     Route: 062

REACTIONS (1)
  - Femur fracture [Recovered/Resolved]
